FAERS Safety Report 23634321 (Version 1)
Quarter: 2024Q1

REPORT INFORMATION
  Report Type: Spontaneous
  Country: ET (occurrence: ET)
  Receive Date: 20240314
  Receipt Date: 20240314
  Transmission Date: 20240409
  Serious: Yes (Death)
  Sender: FDA-Public Use
  Company Number: ET-PRINSTON PHARMACEUTICAL INC.-2024PRN00112

PATIENT
  Age: 68 Year
  Sex: Female

DRUGS (2)
  1. ENALAPRIL MALEATE [Suspect]
     Active Substance: ENALAPRIL MALEATE
     Indication: Hypertension
     Dosage: 10 MG, 1X/DAY
  2. ATENOLOL [Suspect]
     Active Substance: ATENOLOL
     Indication: Sinus tachycardia
     Dosage: 50 MG, 1X/DAY

REACTIONS (3)
  - BRASH syndrome [Fatal]
  - Loss of consciousness [Fatal]
  - Cardiac arrest [Fatal]
